FAERS Safety Report 8901683 (Version 1)
Quarter: 2012Q4

REPORT INFORMATION
  Report Type: Spontaneous
  Country: US (occurrence: None)
  Receive Date: 20121108
  Receipt Date: 20121108
  Transmission Date: 20130627
  Serious: Yes (Other)
  Sender: FDA-Public Use
  Company Number: None

PATIENT
  Age: 52 Year
  Sex: Female
  Weight: 95.07 kg

DRUGS (1)
  1. KLONOPIN [Suspect]
     Indication: ANXIETY
     Dosage: 1 tablet 3 times a day po
     Route: 048
     Dates: start: 20120424, end: 20121026

REACTIONS (5)
  - Drug ineffective [None]
  - Drug intolerance [None]
  - Urticaria [None]
  - Rash [None]
  - Nausea [None]
